FAERS Safety Report 4470809-7 (Version None)
Quarter: 2004Q4

REPORT INFORMATION
  Report Type: 
  Country: None (occurrence: None)
  Receive Date: 20041011
  Receipt Date: 20040525
  Transmission Date: 20050328
  Serious: Yes (Hospitalization)
  Sender: FDA-Public Use
  Company Number: US-BRISTOL-MYERS SQUIBB COMPANY-12596490

PATIENT
  Age: 42 Year
  Sex: Female
  Weight: 103 kg

DRUGS (7)
  1. ERBITUX [Suspect]
     Indication: COLON CANCER
     Dosage: 1ST INFUSION 844 MG 05-MAY-04, 2ND INFUSION 844 MG (13-MAY-94), 3RD DOSE HELD. ON HOLD
     Route: 042
     Dates: start: 20040505, end: 20040505
  2. BENADRYL [Concomitant]
     Indication: PREMEDICATION
  3. DECADRON [Concomitant]
     Indication: PREMEDICATION
  4. ALOXI [Concomitant]
     Indication: PREMEDICATION
  5. ATROPINE [Concomitant]
     Indication: PREMEDICATION
  6. LEUCOVORIN CALCIUM [Concomitant]
  7. IRINOTECAN [Concomitant]

REACTIONS (6)
  - DERMATITIS ACNEIFORM [None]
  - MEDICATION ERROR [None]
  - OVERDOSE [None]
  - PAIN OF SKIN [None]
  - PANCREATITIS ACUTE [None]
  - RASH PRURITIC [None]
